FAERS Safety Report 25728307 (Version 1)
Quarter: 2025Q3

REPORT INFORMATION
  Report Type: Spontaneous
  Country: US (occurrence: US)
  Receive Date: 20250826
  Receipt Date: 20250826
  Transmission Date: 20251020
  Serious: No
  Sender: VERTEX
  Company Number: US-VERTEX PHARMACEUTICALS-2025-013566

PATIENT
  Age: 59 Year
  Sex: Female

DRUGS (1)
  1. JOURNAVX [Suspect]
     Active Substance: SUZETRIGINE
     Indication: Arthritis
     Route: 048
     Dates: start: 20250807, end: 20250814

REACTIONS (2)
  - Narcolepsy [Unknown]
  - Off label use [Unknown]

NARRATIVE: CASE EVENT DATE: 20250807
